FAERS Safety Report 9159066 (Version 1)
Quarter: 2013Q1

REPORT INFORMATION
  Report Type: Spontaneous
  Country: US (occurrence: None)
  Receive Date: 20130211
  Receipt Date: 20130211
  Transmission Date: 20140127
  Serious: Yes (Hospitalization, Other)
  Sender: FDA-Public Use
  Company Number: UTC-028761

PATIENT
  Age: 57 Year
  Sex: Male
  Weight: 125 kg

DRUGS (4)
  1. REMODULIN [Suspect]
     Indication: PULMONARY HYPERTENSION
     Dosage: (0.02 UG/KG, 1 IN 1 MIN)
     Route: 058
     Dates: start: 20121220
  2. REMODULIN [Suspect]
     Indication: PULMONARY ARTERIAL HYPERTENSION
     Dosage: (0.02 UG/KG, 1 IN 1 MIN)
     Route: 058
     Dates: start: 20121220
  3. TYVASO (6 MICROGRAM, AEROSOL FOR INHALATION) (TREPROSTINIL SODIUM) [Suspect]
     Indication: PRODUCT USED FOR UNKNOWN INDICATION
     Route: 055
     Dates: end: 20121220
  4. TRACLEER (BOSENTAN) [Concomitant]

REACTIONS (3)
  - Syncope [None]
  - Tachycardia [None]
  - Pulmonary hypertension [None]
